FAERS Safety Report 15778818 (Version 1)
Quarter: 2019Q1

REPORT INFORMATION
  Report Type: Spontaneous
  Country: US (occurrence: US)
  Receive Date: 20190101
  Receipt Date: 20190101
  Transmission Date: 20190417
  Serious: Yes (Other)
  Sender: FDA-Public Use
  Company Number: US-ASTELLAS-2018US054769

PATIENT
  Age: 42 Year
  Sex: Male

DRUGS (3)
  1. SIROLIMUS. [Concomitant]
     Active Substance: SIROLIMUS
     Indication: TRANSPLANT
     Dosage: UNK UNK, UNKNOWN FREQ.
     Route: 065
  2. TACROLIMUS. [Suspect]
     Active Substance: TACROLIMUS
     Indication: TRANSPLANT
     Dosage: UNK UNK, UNKNOWN FREQ.
     Route: 065
  3. TACROLIMUS. [Suspect]
     Active Substance: TACROLIMUS
     Dosage: UNK UNK, UNKNOWN FREQ.
     Route: 065

REACTIONS (13)
  - Graft loss [Unknown]
  - Donor specific antibody present [Unknown]
  - Nerve compression [Recovering/Resolving]
  - Pain [Unknown]
  - Wound dehiscence [Unknown]
  - Transplant rejection [Unknown]
  - Product use in unapproved indication [Unknown]
  - Swelling [Unknown]
  - Glycosylated haemoglobin increased [Unknown]
  - Staphylococcal abscess [Unknown]
  - Inflammation [Unknown]
  - Rash [Unknown]
  - Blood creatinine increased [Recovered/Resolved]
